FAERS Safety Report 4440204-5 (Version None)
Quarter: 2004Q3

REPORT INFORMATION
  Report Type: 
  Country: None (occurrence: None)
  Receive Date: 20040831
  Receipt Date: 20040818
  Transmission Date: 20050211
  Serious: Yes (Death)
  Sender: FDA-Public Use
  Company Number: 2004AP02052

PATIENT
  Age: 71 Year
  Sex: Male

DRUGS (15)
  1. IRESSA [Suspect]
     Indication: NON-SMALL CELL LUNG CANCER
     Dosage: 250 MG DAILY PO
     Route: 048
     Dates: start: 20021105, end: 20020205
  2. MADOPAR [Concomitant]
  3. SELBEX [Concomitant]
  4. LASIX [Concomitant]
  5. PREDONINE [Concomitant]
  6. KODESORUVAN [Concomitant]
  7. GLIMICRON [Concomitant]
  8. LENDORM [Concomitant]
  9. BENZALIN [Concomitant]
  10. MAGNESIUM OXIDE [Concomitant]
  11. BUSCOPAN [Concomitant]
  12. GASTER [Concomitant]
  13. TAXOTERE [Concomitant]
  14. CYTOTEC [Concomitant]
  15. LOKIFLAN [Concomitant]

REACTIONS (28)
  - BACK PAIN [None]
  - BLOOD LACTATE DEHYDROGENASE INCREASED [None]
  - CARDIAC FAILURE [None]
  - CHEST PAIN [None]
  - CHEST X-RAY ABNORMAL [None]
  - CONDITION AGGRAVATED [None]
  - FACE OEDEMA [None]
  - FATIGUE [None]
  - GASTRITIS [None]
  - GLOSSITIS [None]
  - HAEMOPTYSIS [None]
  - HEADACHE [None]
  - HYPOAESTHESIA [None]
  - ILEUS [None]
  - INFECTION [None]
  - INTERSTITIAL LUNG DISEASE [None]
  - LUNG NEOPLASM MALIGNANT [None]
  - LYMPHANGIOSIS CARCINOMATOSA [None]
  - METASTASES TO BONE [None]
  - OEDEMA PERIPHERAL [None]
  - PAIN [None]
  - PLEURAL EFFUSION [None]
  - PULMONARY FIBROSIS [None]
  - RASH [None]
  - SEBORRHOEIC DERMATITIS [None]
  - THIRST [None]
  - TONGUE DISORDER [None]
  - TREMOR [None]
